FAERS Safety Report 7892555 (Version 5)
Quarter: 2016Q4

REPORT INFORMATION
  Report Type: Spontaneous
  Country: US (occurrence: US)
  Receive Date: 20110411
  Receipt Date: 20161026
  Transmission Date: 20170207
  Serious: Yes (Death, Other)
  Sender: FDA-Public Use
  Company Number: US-BAYER-2011-030711

PATIENT
  Age: 35 Year
  Sex: Female
  Weight: 75.74 kg

DRUGS (20)
  1. METRONIDAZOLE. [Concomitant]
     Active Substance: METRONIDAZOLE
     Route: 067
  2. LORTAB [Concomitant]
     Active Substance: ACETAMINOPHEN\HYDROCODONE BITARTRATE
     Indication: MUSCLE RUPTURE
     Dosage: 5 MG /500 MG, 1 TAB EVERY 6 HOURS AS NEEDED
     Route: 048
     Dates: start: 200909
  3. CITALOPRAM [Concomitant]
     Active Substance: CITALOPRAM HYDROBROMIDE
     Dosage: 20 MG, QD
     Route: 048
  4. VITAMIN D [Concomitant]
     Active Substance: CHOLECALCIFEROL
     Dosage: UNK
     Dates: start: 20090915
  5. LUNESTA [Concomitant]
     Active Substance: ESZOPICLONE
     Dosage: 2 MG, QD
     Dates: start: 2009, end: 200911
  6. FLUCONAZOLE. [Concomitant]
     Active Substance: FLUCONAZOLE
     Dosage: 150 MG, UNK
     Dates: start: 20091002
  7. YAZ [Suspect]
     Active Substance: DROSPIRENONE\ETHINYL ESTRADIOL
     Indication: ORAL CONTRACEPTION
     Dosage: UNK
     Route: 048
     Dates: start: 200903, end: 200911
  8. YAZ [Suspect]
     Active Substance: DROSPIRENONE\ETHINYL ESTRADIOL
     Indication: MENSTRUATION IRREGULAR
  9. NAPROXEN. [Concomitant]
     Active Substance: NAPROXEN
     Dosage: 500 MG, PRN
  10. METFORMIN [Concomitant]
     Active Substance: METFORMIN HYDROCHLORIDE
     Dosage: 2 DF, QD
  11. FERROUS SULFATE. [Concomitant]
     Active Substance: FERROUS SULFATE
  12. CELEXA [Concomitant]
     Active Substance: CITALOPRAM HYDROBROMIDE
     Dosage: UNK
     Dates: start: 20090915
  13. PROMETHAZINE W/CODEINE [Concomitant]
     Active Substance: CODEINE\PROMETHAZINE
     Dosage: UNK
     Dates: start: 20091001
  14. IBUPROFEN. [Concomitant]
     Active Substance: IBUPROFEN
  15. SKELAXIN [Concomitant]
     Active Substance: METAXALONE
     Dosage: 2 DF, QID
  16. DIFLUCAN [Concomitant]
     Active Substance: FLUCONAZOLE
     Indication: VAGINAL INFECTION
     Dosage: 150 MG, QD, 1 [BY MOUTH] NOW AND REPEAT IN 72 [HOURS]
     Route: 048
     Dates: start: 20090903
  17. YAZ [Suspect]
     Active Substance: DROSPIRENONE\ETHINYL ESTRADIOL
     Indication: DYSMENORRHOEA
     Dosage: UNK
     Route: 048
     Dates: start: 200711, end: 200811
  18. METROGEL [Concomitant]
     Active Substance: METRONIDAZOLE
     Dosage: UNK
     Route: 067
     Dates: start: 20090810
  19. KETOCONAZOLE. [Concomitant]
     Active Substance: KETOCONAZOLE
  20. AUGMENTIN [Concomitant]
     Active Substance: AMOXICILLIN\CLAVULANATE POTASSIUM
     Dosage: 875 MG/ 125 MG
     Route: 048
     Dates: start: 20091001

REACTIONS (16)
  - Depression [None]
  - Fatigue [Fatal]
  - Weight increased [None]
  - Myocardial infarction [Fatal]
  - Insomnia [None]
  - Alopecia [None]
  - Vaginal infection [None]
  - Vomiting [Fatal]
  - Off label use [None]
  - Heart rate increased [Fatal]
  - Hypoaesthesia [Fatal]
  - Muscle rupture [None]
  - Metrorrhagia [None]
  - Hepatic enzyme increased [None]
  - Blood potassium increased [None]
  - Abdominal pain upper [None]

NARRATIVE: CASE EVENT DATE: 2009
